FAERS Safety Report 5021287-0 (Version None)
Quarter: 2006Q2

REPORT INFORMATION
  Report Type: 
  Country: None (occurrence: None)
  Receive Date: 20060608
  Receipt Date: 20060301
  Transmission Date: 20061013
  Serious: Yes (Life-Threatening)
  Sender: FDA-Public Use
  Company Number: FR-GLAXOSMITHKLINE-B0414462A

PATIENT
  Age: 49 Year
  Sex: Male
  Weight: 104 kg

DRUGS (8)
  1. BECOTIDE [Suspect]
     Indication: ASTHMA
     Dosage: 4PUFF PER DAY
     Route: 055
     Dates: end: 20040301
  2. SERETIDE DISKUS [Suspect]
     Indication: ASTHMA
     Dosage: 1PUFF TWICE PER DAY
     Route: 055
     Dates: start: 20040301
  3. VENTOLIN [Concomitant]
     Indication: ASTHMA
     Route: 055
  4. ALLOPURINOL [Concomitant]
     Indication: BLOOD URIC ACID
     Dosage: 200MG PER DAY
  5. EFFERALGAN CODEINE [Concomitant]
     Dosage: 3UNIT PER DAY
  6. TAHOR [Concomitant]
     Dosage: 10MG PER DAY
  7. OGAST [Concomitant]
     Dosage: 30MG PER DAY
  8. FORADIL [Concomitant]
     Indication: ASTHMA
     Dosage: 2PUFF PER DAY
     Dates: start: 20000101, end: 20040301

REACTIONS (1)
  - LARYNGEAL CANCER [None]
